FAERS Safety Report 10590118 (Version 1)
Quarter: 2014Q4

REPORT INFORMATION
  Report Type: Spontaneous
  Country: US (occurrence: None)
  Receive Date: 20141117
  Receipt Date: 20141117
  Transmission Date: 20150529
  Serious: No
  Sender: FDA-Public Use
  Company Number: None

PATIENT
  Age: 31 Year
  Sex: Female

DRUGS (1)
  1. MAKENA [Suspect]
     Active Substance: HYDROXYPROGESTERONE CAPROATE
     Indication: PREMATURE LABOUR
     Dosage: 250MG QWK IM
     Route: 030
     Dates: start: 20141113

REACTIONS (3)
  - Injection site pruritus [None]
  - Injection site swelling [None]
  - Maternal exposure timing unspecified [None]

NARRATIVE: CASE EVENT DATE: 20141114
